FAERS Safety Report 8321208-9 (Version None)
Quarter: 2012Q2

REPORT INFORMATION
  Report Type: 
  Country: None (occurrence: None)
  Receive Date: 20120430
  Receipt Date: 20120424
  Transmission Date: 20120825
  Serious: Yes (Hospitalization)
  Sender: FDA-Public Use
  Company Number: FR-PFIZER INC-2012100696

PATIENT
  Age: 71 Year
  Sex: Male

DRUGS (18)
  1. ONDANSETRON [Concomitant]
     Dosage: UNK
     Dates: start: 20120314, end: 20120316
  2. EMEND [Concomitant]
     Dosage: UNK
     Dates: start: 20120314, end: 20120316
  3. FLUCONAZOLE [Concomitant]
     Dosage: UNK
     Dates: start: 20120316, end: 20120316
  4. SODIUM CHLORIDE [Concomitant]
     Dosage: UNK
     Dates: start: 20120314, end: 20120316
  5. SOLU-MEDROL [Concomitant]
     Dosage: UNK
     Dates: start: 20120314, end: 20120315
  6. XANAX [Concomitant]
     Dosage: UNK
     Dates: start: 20120314, end: 20120314
  7. VOGALENE [Concomitant]
     Dosage: UNK
     Dates: start: 20120314, end: 20120316
  8. MORPHINE [Concomitant]
     Indication: ABDOMINAL PAIN
     Dosage: UNK
     Dates: start: 20120314
  9. FOLINIC ACID [Concomitant]
     Indication: COLORECTAL CANCER METASTATIC
     Dosage: UNK
     Dates: start: 20120208
  10. SPASFON [Concomitant]
     Dosage: UNK
     Dates: start: 20120314, end: 20120316
  11. LEVOTHYROXINE SODIUM [Concomitant]
     Dosage: UNK
     Dates: start: 20120315, end: 20120316
  12. IRINOTECAN HCL [Suspect]
     Indication: COLORECTAL CANCER METASTATIC
     Dosage: 150 MG/M2, CYCLIC
     Route: 042
     Dates: start: 20120208, end: 20120314
  13. ATROPINE [Concomitant]
     Dosage: UNK
     Dates: start: 20120314
  14. ACUPAN [Concomitant]
     Dosage: UNK
     Dates: start: 20120314, end: 20120314
  15. ELOXATIN [Suspect]
     Indication: COLORECTAL CANCER METASTATIC
     Dosage: 85 MG/M2, CYCLIC
     Route: 042
     Dates: start: 20120208, end: 20120314
  16. FLUOROURACIL [Concomitant]
     Indication: COLORECTAL CANCER METASTATIC
     Dosage: UNK
     Dates: start: 20120208
  17. PARACETAMOL [Concomitant]
     Dosage: UNK
     Dates: start: 20120314, end: 20120315
  18. GLUCOSE/POTASSIUM CHL/SODIUM BICARB/SODIUM CHL/SUCROSE [Concomitant]
     Dosage: UNK
     Dates: start: 20120314, end: 20120317

REACTIONS (2)
  - CYTOLYTIC HEPATITIS [None]
  - ABDOMINAL PAIN [None]
